FAERS Safety Report 16653123 (Version 9)
Quarter: 2022Q2

REPORT INFORMATION
  Report Type: Spontaneous
  Country: US (occurrence: US)
  Receive Date: 20190731
  Receipt Date: 20220519
  Transmission Date: 20220721
  Serious: Yes (Other)
  Sender: FDA-Public Use
  Company Number: US-PFIZER INC-2018420899

PATIENT
  Age: 68 Year
  Sex: Female
  Weight: 46.72 kg

DRUGS (3)
  1. LYRICA [Suspect]
     Active Substance: PREGABALIN
     Indication: Fibromyalgia
     Dosage: 75 MG, TWICE A DAY
     Route: 048
     Dates: start: 2017
  2. LYRICA [Suspect]
     Active Substance: PREGABALIN
     Indication: Post laminectomy syndrome
  3. HYDROCODONE [Concomitant]
     Active Substance: HYDROCODONE
     Indication: Fibromyalgia
     Dosage: 5 MG, AS NEEDED
     Route: 048
     Dates: start: 2017

REACTIONS (4)
  - Drug dependence [Unknown]
  - Cerebral disorder [Unknown]
  - General physical health deterioration [Unknown]
  - Abdominal discomfort [Unknown]
